FAERS Safety Report 8604762 (Version 3)
Quarter: 2012Q4

REPORT INFORMATION
  Report Type: 
  Country: US (occurrence: US)
  Receive Date: 20120608
  Receipt Date: 20120924
  Transmission Date: 20130627
  Serious: Yes (Hospitalization)
  Sender: FDA-Public Use
  Company Number: US-BAYER-2012-055867

PATIENT
  Age: 34 Year
  Sex: Female
  Weight: 79.82 kg

DRUGS (7)
  1. YASMIN [Suspect]
     Indication: ACNE
     Dosage: UNK
     Dates: start: 200711, end: 200712
  2. YAZ [Suspect]
     Indication: ACNE
     Dosage: UNK
     Dates: start: 200711, end: 200712
  3. CLARITIN [Concomitant]
     Indication: SEASONAL ALLERGY
     Dosage: 10 mg, UNK
     Route: 048
     Dates: start: 2010
  4. ZOLOFT [Concomitant]
     Indication: DEPRESSION
     Dosage: 100 mg, UNK
     Route: 048
     Dates: start: 2005
  5. HYDROCODONE W/ACETAMINOPHEN [Concomitant]
     Dosage: 5/325
     Route: 048
  6. LORATADIN [Concomitant]
  7. SERTRALINE [Concomitant]

REACTIONS (4)
  - Pulmonary embolism [None]
  - Pain [None]
  - Injury [None]
  - Mental disorder [None]
